FAERS Safety Report 5867750-1 (Version None)
Quarter: 2008Q3

REPORT INFORMATION
  Report Type: 
  Country: None (occurrence: None)
  Receive Date: 20080902
  Receipt Date: 20080711
  Transmission Date: 20090109
  Serious: Yes (Other)
  Sender: FDA-Public Use
  Company Number: US-PURDUE-USA_2008_0034467

PATIENT
  Age: 54 Year
  Sex: Female
  Weight: 80 kg

DRUGS (1)
  1. OXYCONTIN [Suspect]
     Indication: NERVE INJURY
     Dosage: 20 MG, BID
     Route: 048
     Dates: start: 19950101

REACTIONS (1)
  - BREAST CANCER [None]
